FAERS Safety Report 25945406 (Version 1)
Quarter: 2025Q4

REPORT INFORMATION
  Report Type: Spontaneous
  Country: GB (occurrence: GB)
  Receive Date: 20251021
  Receipt Date: 20251021
  Transmission Date: 20260117
  Serious: Yes (Hospitalization, Other)
  Sender: ELI LILLY AND COMPANY
  Company Number: None

PATIENT
  Age: 34 Year
  Sex: Female
  Weight: 110 kg

DRUGS (2)
  1. MOUNJARO [Suspect]
     Active Substance: TIRZEPATIDE
     Indication: Weight control
     Dosage: 5 MG, WEEKLY (1/W)
     Route: 065
     Dates: start: 20250602, end: 20250908
  2. MOUNJARO [Suspect]
     Active Substance: TIRZEPATIDE
     Indication: Weight control
     Dosage: 5 MG, WEEKLY (1/W)
     Route: 065
     Dates: start: 20250602, end: 20250908

REACTIONS (3)
  - Obstructive pancreatitis [Recovering/Resolving]
  - Postoperative wound infection [Not Recovered/Not Resolved]
  - Postoperative wound complication [Not Recovered/Not Resolved]

NARRATIVE: CASE EVENT DATE: 20250808
